FAERS Safety Report 5195189-3 (Version None)
Quarter: 2006Q4

REPORT INFORMATION
  Report Type: 
  Country: None (occurrence: None)
  Receive Date: 20061229
  Receipt Date: 20060926
  Transmission Date: 20070319
  Serious: Yes (Hospitalization)
  Sender: FDA-Public Use
  Company Number: JP-PFIZER INC-2006120422

PATIENT
  Sex: Male

DRUGS (4)
  1. SOLU-MEDROL [Suspect]
     Indication: RESPIRATORY DISTRESS
     Dosage: DAILY DOSE:250MG
     Route: 042
     Dates: start: 20060924, end: 20060924
  2. NEOPHYLLIN [Concomitant]
     Route: 051
     Dates: start: 20060924, end: 20060924
  3. ALL OTHER THERAPEUTIC PRODUCTS [Concomitant]
     Dates: start: 20060924, end: 20060924
  4. ALBUTEROL [Concomitant]

REACTIONS (1)
  - STATUS ASTHMATICUS [None]
